FAERS Safety Report 9145923 (Version 3)
Quarter: 2013Q3

REPORT INFORMATION
  Report Type: Report from Study
  Country: TH (occurrence: TH)
  Receive Date: 20130307
  Receipt Date: 20130708
  Transmission Date: 20140515
  Serious: Yes (Death, Other)
  Sender: FDA-Public Use
  Company Number: PHHY2013TH022193

PATIENT
  Sex: Male

DRUGS (2)
  1. TASIGNA [Suspect]
     Indication: CHRONIC MYELOID LEUKAEMIA
     Dosage: 400 MG, BID
     Route: 048
     Dates: start: 20110419
  2. ANTIEPILEPTICS [Concomitant]

REACTIONS (4)
  - Death [Fatal]
  - Cerebrovascular accident [Recovering/Resolving]
  - Asthenia [Unknown]
  - Somnolence [Unknown]
